FAERS Safety Report 5492786-2 (Version None)
Quarter: 2007Q4

REPORT INFORMATION
  Report Type: 
  Country: None (occurrence: None)
  Receive Date: 20071019
  Receipt Date: 20071004
  Transmission Date: 20080405
  Serious: Yes (Life-Threatening, Hospitalization, Other)
  Sender: FDA-Public Use
  Company Number: 2007001621

PATIENT
  Age: 53 Year
  Sex: Male

DRUGS (10)
  1. TARCEVA [Suspect]
     Indication: NON-SMALL CELL LUNG CANCER
     Dosage: (150 MG, QD), ORAL
     Route: 048
     Dates: start: 20070821, end: 20070821
  2. METOPROLOL TARTRATE [Concomitant]
  3. RAMIPRIL COMP [Concomitant]
  4. RAMIPRIL [Concomitant]
  5. HYDROCHLOROTHIAZIDE [Concomitant]
  6. ESOMEPRAZOLE (ESOMERAZOLE) [Concomitant]
  7. ACETYLCYSTEINE [Concomitant]
  8. DEXAMETHASONE TAB [Concomitant]
  9. PROMETHAZINE HCL [Concomitant]
  10. PARACODINE (DIHYDROCODEINE BITARTRATE) [Concomitant]

REACTIONS (25)
  - ABDOMINAL PAIN [None]
  - ANGIOPATHY [None]
  - BLOOD CREATINE DECREASED [None]
  - BLOOD GLUCOSE INCREASED [None]
  - BLOOD LACTATE DEHYDROGENASE INCREASED [None]
  - BRONCHIAL NEOPLASM [None]
  - BRONCHOSTENOSIS [None]
  - C-REACTIVE PROTEIN INCREASED [None]
  - CEREBRAL INFARCTION [None]
  - CHEST PAIN [None]
  - GASTRITIS HAEMORRHAGIC [None]
  - HAEMATOCRIT DECREASED [None]
  - HAEMOGLOBIN DECREASED [None]
  - HAEMOPTYSIS [None]
  - ISCHAEMIA [None]
  - MALIGNANT NEOPLASM PROGRESSION [None]
  - METASTASES TO CENTRAL NERVOUS SYSTEM [None]
  - NERVOUS SYSTEM DISORDER [None]
  - PLEURAL HAEMORRHAGE [None]
  - PULMONARY HAEMORRHAGE [None]
  - RED BLOOD CELL COUNT DECREASED [None]
  - TACHYCARDIA [None]
  - VERTIGO [None]
  - VISUAL DISTURBANCE [None]
  - WHITE BLOOD CELL COUNT INCREASED [None]
